FAERS Safety Report 25837869 (Version 2)
Quarter: 2025Q4

REPORT INFORMATION
  Report Type: Spontaneous
  Country: EU (occurrence: EU)
  Receive Date: 20250923
  Receipt Date: 20251003
  Transmission Date: 20260117
  Serious: Yes (Other)
  Sender: MYLAN
  Company Number: None

PATIENT
  Age: 69 Year
  Sex: Male
  Weight: 94 kg

DRUGS (12)
  1. PREDNISONE [Suspect]
     Active Substance: PREDNISONE
     Indication: Sarcoidosis
     Dosage: 5 MILLIGRAM,QD,(ONCE DAILY), 1 DOSAGE FORM
     Dates: start: 20150102
  2. PREDNISONE [Suspect]
     Active Substance: PREDNISONE
     Dosage: 5 MILLIGRAM,QD,(ONCE DAILY), 1 DOSAGE FORM
     Dates: start: 20150102
  3. PREDNISONE [Suspect]
     Active Substance: PREDNISONE
     Dosage: 5 MILLIGRAM,QD,(ONCE DAILY), 1 DOSAGE FORM
     Route: 048
     Dates: start: 20150102
  4. PREDNISONE [Suspect]
     Active Substance: PREDNISONE
     Dosage: 5 MILLIGRAM,QD,(ONCE DAILY), 1 DOSAGE FORM
     Route: 048
     Dates: start: 20150102
  5. PREDNISONE [Suspect]
     Active Substance: PREDNISONE
     Dosage: 5 MILLIGRAM,QD,(ONCE DAILY)
     Dates: end: 2021
  6. PREDNISONE [Suspect]
     Active Substance: PREDNISONE
     Dosage: 5 MILLIGRAM,QD,(ONCE DAILY)
     Dates: end: 2021
  7. PREDNISONE [Suspect]
     Active Substance: PREDNISONE
     Dosage: 5 MILLIGRAM,QD,(ONCE DAILY)
     Route: 048
     Dates: end: 2021
  8. PREDNISONE [Suspect]
     Active Substance: PREDNISONE
     Dosage: 5 MILLIGRAM,QD,(ONCE DAILY)
     Route: 048
     Dates: end: 2021
  9. METHOTREXATE [Concomitant]
     Active Substance: METHOTREXATE
     Dosage: UNK
  10. METHOTREXATE [Concomitant]
     Active Substance: METHOTREXATE
     Dosage: UNK
     Route: 048
  11. METHOTREXATE [Concomitant]
     Active Substance: METHOTREXATE
     Dosage: UNK
     Route: 048
  12. METHOTREXATE [Concomitant]
     Active Substance: METHOTREXATE
     Dosage: UNK

REACTIONS (1)
  - Spinal cord lipoma [Recovered/Resolved]

NARRATIVE: CASE EVENT DATE: 20220101
